FAERS Safety Report 6127412-2 (Version None)
Quarter: 2009Q1

REPORT INFORMATION
  Report Type: 
  Country: None (occurrence: None)
  Receive Date: 20090323
  Receipt Date: 20090318
  Transmission Date: 20090719
  Serious: Yes (Death, Life-Threatening, Hospitalization)
  Sender: FDA-Public Use
  Company Number: PHHO2007US07757

PATIENT
  Sex: Male
  Weight: 81.1 kg

DRUGS (18)
  1. TASIGNA [Suspect]
     Indication: CHRONIC MYELOID LEUKAEMIA
     Dosage: 400 MG, QD
     Route: 048
     Dates: start: 20060216, end: 20070430
  2. LIPITOR [Concomitant]
  3. ASPIRIN [Concomitant]
  4. ATENOLOL [Concomitant]
     Indication: CORONARY ARTERY DISEASE
     Dosage: 25 MG, UNK
     Route: 048
     Dates: start: 20060502
  5. ZYRTEC [Concomitant]
  6. NITROGLYCERIN [Concomitant]
     Indication: ANGINA PECTORIS
  7. ZANTAC [Concomitant]
     Indication: PEPTIC ULCER
  8. CELEBREX [Concomitant]
     Indication: OSTEOARTHRITIS
     Dates: start: 20040101
  9. HYDROCHLOROTHIAZIDE [Concomitant]
     Indication: HYPERTENSION
     Dosage: 0.4MG PRN
  10. LOVASTATIN [Concomitant]
     Indication: HYPERCHOLESTEROLAEMIA
     Dosage: 10 MG, QD
     Dates: start: 19970101
  11. TERAZOSIN HCL [Concomitant]
     Indication: BENIGN PROSTATIC HYPERPLASIA
     Dosage: UNK
     Dates: start: 20040101
  12. ASPIRIN [Concomitant]
     Indication: CORONARY ARTERY DISEASE
     Dosage: UNK
     Dates: start: 19980101
  13. NASONEX [Concomitant]
     Indication: SEASONAL ALLERGY
     Dosage: UNK
     Dates: start: 20040101
  14. TYLENOL [Concomitant]
     Indication: PAIN IN EXTREMITY
     Dosage: UNK
     Dates: start: 20060413, end: 20060608
  15. ATROPINE [Concomitant]
     Indication: SINUS BRADYCARDIA
     Dosage: UNK
     Dates: start: 20070430, end: 20070430
  16. EPINEPHRINE [Concomitant]
     Indication: SINUS BRADYCARDIA
     Dosage: UNK
     Dates: start: 20070430, end: 20070430
  17. BICANORM (SODIUM BICARBONATE) [Concomitant]
     Indication: SINUS BRADYCARDIA
     Dosage: UNK
     Dates: start: 20070430, end: 20070430
  18. VASOPRESSIN AND ANALOGUES [Concomitant]
     Indication: SINUS BRADYCARDIA
     Dosage: UNK
     Dates: start: 20070430, end: 20070430

REACTIONS (15)
  - ACUTE CORONARY SYNDROME [None]
  - ACUTE MYOCARDIAL INFARCTION [None]
  - ANGINA UNSTABLE [None]
  - CARDIAC ARREST [None]
  - CARDIAC ENZYMES INCREASED [None]
  - CHEST PAIN [None]
  - CORONARY ARTERY BYPASS [None]
  - DYSPNOEA [None]
  - ELECTROCARDIOGRAM QT PROLONGED [None]
  - ELECTROCARDIOGRAM ST SEGMENT DEPRESSION [None]
  - INTRA-AORTIC BALLOON PLACEMENT [None]
  - MUSCULOSKELETAL PAIN [None]
  - MYOCARDIAL ISCHAEMIA [None]
  - PLEURAL EFFUSION [None]
  - SINUS BRADYCARDIA [None]
